FAERS Safety Report 19957561 (Version 1)
Quarter: 2021Q4

REPORT INFORMATION
  Report Type: Report from Study
  Country: US (occurrence: US)
  Receive Date: 20211014
  Receipt Date: 20211014
  Transmission Date: 20220303
  Serious: Yes (Death, Other)
  Sender: FDA-Public Use
  Company Number: US-TAKEDA-2021TUS063138

PATIENT
  Age: 62 Year
  Sex: Male

DRUGS (8)
  1. TEDUGLUTIDE [Suspect]
     Active Substance: TEDUGLUTIDE
     Indication: Short-bowel syndrome
     Dosage: 3.2 MILLIGRAM, 1/WEEK
     Route: 065
     Dates: start: 20170911, end: 20180820
  2. TEDUGLUTIDE [Suspect]
     Active Substance: TEDUGLUTIDE
     Indication: Short-bowel syndrome
     Dosage: 3.2 MILLIGRAM, 1/WEEK
     Route: 065
     Dates: start: 20170911, end: 20180820
  3. TEDUGLUTIDE [Suspect]
     Active Substance: TEDUGLUTIDE
     Indication: Short-bowel syndrome
     Dosage: 3.2 MILLIGRAM, 1/WEEK
     Route: 065
     Dates: start: 20170911, end: 20180820
  4. TEDUGLUTIDE [Suspect]
     Active Substance: TEDUGLUTIDE
     Indication: Short-bowel syndrome
     Dosage: 3.2 MILLIGRAM, 1/WEEK
     Route: 065
     Dates: start: 20170911, end: 20180820
  5. BUDESONIDE [Concomitant]
     Active Substance: BUDESONIDE
     Indication: Rhinitis
     Dosage: 2 SPRAY,
     Route: 050
     Dates: start: 20210226
  6. ZOSYN [Concomitant]
     Active Substance: PIPERACILLIN SODIUM\TAZOBACTAM SODIUM
     Indication: Complicated appendicitis
     Dosage: 4.50 GRAM, QD
     Route: 042
     Dates: start: 20181219, end: 20211221
  7. VANCOMYCIN [Concomitant]
     Active Substance: VANCOMYCIN
     Indication: Complicated appendicitis
     Dosage: 1 GRAM, QD
     Route: 042
     Dates: start: 20181219, end: 20181230
  8. PERCOCET [Concomitant]
     Active Substance: ACETAMINOPHEN\OXYCODONE HYDROCHLORIDE
     Indication: Pain
     Dosage: 5 MILLIGRAM, PRN
     Route: 048
     Dates: start: 20190111

REACTIONS (1)
  - Sepsis [Fatal]

NARRATIVE: CASE EVENT DATE: 20210427
